FAERS Safety Report 15037382 (Version 1)
Quarter: 2018Q2

REPORT INFORMATION
  Report Type: Spontaneous
  Country: CA (occurrence: CA)
  Receive Date: 20180620
  Receipt Date: 20180620
  Transmission Date: 20180711
  Serious: Yes (Other)
  Sender: FDA-Public Use
  Company Number: CA-MYLANLABS-2018M1042805

PATIENT
  Age: 31 Year
  Sex: Female

DRUGS (17)
  1. EPIPEN JR [Suspect]
     Active Substance: EPINEPHRINE
     Dosage: UNK
     Route: 065
  2. EPIPEN JR [Suspect]
     Active Substance: EPINEPHRINE
     Dosage: 0.5 MG, UNK
     Route: 030
  3. BENADRYL [Concomitant]
     Active Substance: DIPHENHYDRAMINE HYDROCHLORIDE
     Indication: PRODUCT USED FOR UNKNOWN INDICATION
     Dosage: 1 DF, UNK
     Route: 065
  4. DIAZEPAM. [Concomitant]
     Active Substance: DIAZEPAM
     Indication: PRODUCT USED FOR UNKNOWN INDICATION
     Dosage: 1 DF, UNK
     Route: 065
  5. XOLAIR [Suspect]
     Active Substance: OMALIZUMAB
     Indication: CHRONIC SPONTANEOUS URTICARIA
     Dosage: 300 MG, UNK
     Route: 058
  6. GABAPENTIN. [Concomitant]
     Active Substance: GABAPENTIN
     Indication: PRODUCT USED FOR UNKNOWN INDICATION
     Dosage: 1 DF, QD
     Route: 065
  7. XOLAIR [Suspect]
     Active Substance: OMALIZUMAB
     Indication: CHRONIC SPONTANEOUS URTICARIA
     Dosage: 150 MG, UNK
     Route: 065
  8. KETOTIFEN [Concomitant]
     Active Substance: KETOTIFEN
     Indication: PRODUCT USED FOR UNKNOWN INDICATION
     Dosage: 1 DF, QD
     Route: 065
  9. PREDNISONE. [Concomitant]
     Active Substance: PREDNISONE
     Indication: PRODUCT USED FOR UNKNOWN INDICATION
     Dosage: 1 DF, UNK
     Route: 065
  10. SODIUM CHLORIDE. [Concomitant]
     Active Substance: SODIUM CHLORIDE
     Indication: PROPHYLAXIS
     Dosage: UNK
     Route: 065
  11. EPIPEN JR [Suspect]
     Active Substance: EPINEPHRINE
     Indication: PRODUCT USED FOR UNKNOWN INDICATION
     Dosage: UNK
     Route: 030
  12. EPIPEN JR [Suspect]
     Active Substance: EPINEPHRINE
     Dosage: UNK
     Route: 030
  13. EPIPEN JR [Suspect]
     Active Substance: EPINEPHRINE
     Dosage: 0.5 MG, UNK
     Route: 030
  14. EPIPEN JR [Suspect]
     Active Substance: EPINEPHRINE
     Dosage: 0.5 MG, UNK
     Route: 030
  15. NALCROM [Concomitant]
     Active Substance: CROMOLYN SODIUM
     Indication: PRODUCT USED FOR UNKNOWN INDICATION
     Dosage: 1 DF, QD
     Route: 065
  16. CLARITIN [Concomitant]
     Active Substance: LORATADINE
     Indication: PRODUCT USED FOR UNKNOWN INDICATION
     Dosage: 1 DF, QD
     Route: 065
  17. SINGULAIR [Concomitant]
     Active Substance: MONTELUKAST SODIUM
     Indication: PRODUCT USED FOR UNKNOWN INDICATION
     Dosage: 1 DF, QD
     Route: 065

REACTIONS (10)
  - Sensation of foreign body [Not Recovered/Not Resolved]
  - Dyspnoea [Not Recovered/Not Resolved]
  - Myoclonus [Not Recovered/Not Resolved]
  - Unresponsive to stimuli [Not Recovered/Not Resolved]
  - Aphasia [Not Recovered/Not Resolved]
  - Seizure [Not Recovered/Not Resolved]
  - Multiple allergies [Not Recovered/Not Resolved]
  - Throat irritation [Not Recovered/Not Resolved]
  - Urticaria [Not Recovered/Not Resolved]
  - Hyperhidrosis [Not Recovered/Not Resolved]
